FAERS Safety Report 9802149 (Version 1)
Quarter: 2014Q1

REPORT INFORMATION
  Report Type: Spontaneous
  Country: US (occurrence: US)
  Receive Date: 20140107
  Receipt Date: 20140107
  Transmission Date: 20141002
  Serious: No
  Sender: FDA-Public Use
  Company Number: US-009507513-1401USA000667

PATIENT
  Age: 69 Year
  Sex: Female

DRUGS (2)
  1. NASONEX [Suspect]
     Indication: RHINITIS
     Route: 045
  2. SODIUM CHLORIDE [Concomitant]
     Indication: RHINITIS
     Dosage: SPRAY

REACTIONS (2)
  - Drug dose omission [Unknown]
  - Product quality issue [Unknown]
